FAERS Safety Report 19756025 (Version 1)
Quarter: 2021Q3

REPORT INFORMATION
  Report Type: Spontaneous
  Country: US (occurrence: US)
  Receive Date: 20210827
  Receipt Date: 20210827
  Transmission Date: 20211014
  Serious: Yes (Other)
  Sender: FDA-Public Use
  Company Number: US-BAYER-2021-197899

PATIENT
  Age: 17 Year
  Sex: Male

DRUGS (1)
  1. TINACTIN [Suspect]
     Active Substance: TOLNAFTATE
     Indication: RASH
     Dosage: 1 DF, Q1HR
     Route: 061
     Dates: start: 202108, end: 20210818

REACTIONS (4)
  - Choking [Unknown]
  - Cough [Unknown]
  - Retching [Unknown]
  - Product use in unapproved indication [Unknown]

NARRATIVE: CASE EVENT DATE: 202108
